FAERS Safety Report 13657715 (Version 2)
Quarter: 2017Q2

REPORT INFORMATION
  Report Type: Spontaneous
  Country: NO (occurrence: NO)
  Receive Date: 20170615
  Receipt Date: 20170621
  Transmission Date: 20170830
  Serious: Yes (Other)
  Sender: FDA-Public Use
  Company Number: NO-ROCHE-1941948

PATIENT
  Sex: Female

DRUGS (1)
  1. AVASTIN [Suspect]
     Active Substance: BEVACIZUMAB
     Indication: OVARIAN CANCER
     Route: 065
     Dates: start: 201608, end: 201612

REACTIONS (3)
  - Myelodysplastic syndrome [Unknown]
  - Thrombocytopenia [Not Recovered/Not Resolved]
  - Neutropenia [Unknown]
